FAERS Safety Report 5485558-6 (Version None)
Quarter: 2007Q4

REPORT INFORMATION
  Report Type: 
  Country: None (occurrence: None)
  Receive Date: 20071002
  Receipt Date: 20070921
  Transmission Date: 20080405
  Serious: Yes (Other)
  Sender: FDA-Public Use
  Company Number: GXKR2007GB08264

PATIENT
  Sex: Female

DRUGS (2)
  1. MIRTAZAPINE [Suspect]
     Dosage: 30 MG, QD, ORAL
     Route: 048
  2. FLUPENTIXOL(FLUPENTIXOL) [Suspect]

REACTIONS (1)
  - MONONEUROPATHY MULTIPLEX [None]
